FAERS Safety Report 8217991-3 (Version None)
Quarter: 2012Q1

REPORT INFORMATION
  Report Type: 
  Country: None (occurrence: None)
  Receive Date: 20120319
  Receipt Date: 20120312
  Transmission Date: 20120608
  Serious: Yes (Death, Hospitalization, Other)
  Sender: FDA-Public Use
  Company Number: US-PFIZER INC-2010005914

PATIENT
  Sex: Male
  Weight: 79.365 kg

DRUGS (6)
  1. LOPRESSOR [Concomitant]
     Indication: MYOCARDIAL INFARCTION
     Dosage: UNK
  2. GLUCOTROL XL [Suspect]
     Indication: DIABETES MELLITUS
     Dosage: 15 MG, 1X/DAY
     Route: 048
  3. GLUCOTROL XL [Suspect]
     Dosage: 5 MG, 2X/DAY
     Route: 048
  4. FUROSEMIDE [Concomitant]
     Dosage: 40 MG, 2X/DAY
  5. ALLOPURINOL [Concomitant]
     Dosage: 100 MG, UNK
  6. WARFARIN [Concomitant]
     Dosage: 5 MG, 1X/DAY

REACTIONS (6)
  - BALANCE DISORDER [None]
  - DEATH [None]
  - DYSPNOEA [None]
  - MYOCARDIAL INFARCTION [None]
  - CARDIAC DISORDER [None]
  - MALAISE [None]
